FAERS Safety Report 20718129 (Version 5)
Quarter: 2025Q1

REPORT INFORMATION
  Report Type: Report from Study
  Country: US (occurrence: US)
  Receive Date: 20220418
  Receipt Date: 20250208
  Transmission Date: 20250409
  Serious: Yes (Other)
  Sender: AVEO PHARMACEUTICALS
  Company Number: US-AVEO ONCOLOGY-2022-AVEO-US000082

PATIENT

DRUGS (9)
  1. FOTIVDA [Suspect]
     Active Substance: TIVOZANIB HYDROCHLORIDE
     Indication: Renal cell carcinoma
     Dosage: 0.89 MG, DAILY 3 WEEKS ON ONE WEEK OFF
     Route: 048
     Dates: start: 20220202
  2. ROSUVASTATIN CALCIUM [Concomitant]
     Active Substance: ROSUVASTATIN CALCIUM
     Route: 048
  3. TOLTERODINE TARTRATE [Concomitant]
     Active Substance: TOLTERODINE TARTRATE
     Route: 048
  4. HERBALS\TURMERIC [Concomitant]
     Active Substance: HERBALS\TURMERIC
     Dosage: 500 MG 2 CAPSULES BY MOUTH DAILY FOR SUPPLEMENT
     Route: 048
  5. VITAMIN D3 [Concomitant]
     Active Substance: CHOLECALCIFEROL
     Dosage: 1000 UG,  TAKE 1 TABLET BY MOUTH 2 TIMES DAILY FOR SUPPLEMENT
  6. Systane I Caps [Concomitant]
  7. FISH OIL [Concomitant]
     Active Substance: FISH OIL
     Dosage: 1,050-1,200 MG TAKE 3 CAPSULES BY MOUTH 3 TIMES DAILY FOR SUPPLEMENT
     Route: 048
  8. CYANOCOBALAMIN [Concomitant]
     Active Substance: CYANOCOBALAMIN
     Dosage: 1000 UNK, TAKE 1,000 MCG BY MOUTH 2 TIMES DAILY FOR SUPPLEMENT
     Route: 048
  9. DIAZEPAM [Concomitant]
     Active Substance: DIAZEPAM

REACTIONS (7)
  - Malignant pleural effusion [Unknown]
  - Metastases to lung [Unknown]
  - Blood pressure increased [Unknown]
  - Fatigue [Not Recovered/Not Resolved]
  - Rib fracture [Not Recovered/Not Resolved]
  - Blood thyroid stimulating hormone increased [Not Recovered/Not Resolved]
  - Tumour invasion [Not Recovered/Not Resolved]

NARRATIVE: CASE EVENT DATE: 20220318
